FAERS Safety Report 25586262 (Version 1)
Quarter: 2025Q3

REPORT INFORMATION
  Report Type: Report from Study
  Country: US (occurrence: US)
  Receive Date: 20250721
  Receipt Date: 20250721
  Transmission Date: 20251021
  Serious: Yes (Hospitalization)
  Sender: VERTEX
  Company Number: US-VERTEX PHARMACEUTICALS-2023-003231

PATIENT
  Sex: Female

DRUGS (16)
  1. TRIKAFTA [Suspect]
     Active Substance: ELEXACAFTOR\IVACAFTOR\TEZACAFTOR
     Indication: Cystic fibrosis
     Dosage: 2 ORANGE TABLET IN THE AM AND 1 BLUE TABLET IN PM
     Route: 048
     Dates: start: 20230215, end: 20230225
  2. TRIKAFTA [Suspect]
     Active Substance: ELEXACAFTOR\IVACAFTOR\TEZACAFTOR
     Route: 048
     Dates: start: 20230226, end: 20230228
  3. VENTOLIN [Concomitant]
     Active Substance: ALBUTEROL SULFATE
  4. ADVAIR DISKUS [Concomitant]
     Active Substance: FLUTICASONE PROPIONATE\SALMETEROL XINAFOATE
  5. MIRABEGRON [Concomitant]
     Active Substance: MIRABEGRON
  6. WARFARIN [Concomitant]
     Active Substance: WARFARIN
     Indication: Embolism
  7. CALCIUM [Concomitant]
     Active Substance: CALCIUM
     Indication: Renal disorder
  8. PRAVASTATIN [Concomitant]
     Active Substance: PRAVASTATIN
     Indication: Osteoporosis
  9. VITAMIN D [Concomitant]
     Active Substance: VITAMIN D NOS
     Indication: Renal disorder
  10. PROLIA [Concomitant]
     Active Substance: DENOSUMAB
     Indication: Osteoporosis
     Route: 058
  11. FLONASE ALLERGY RELIEF [Concomitant]
     Active Substance: FLUTICASONE PROPIONATE
     Route: 045
  12. PREMARIN [Concomitant]
     Active Substance: ESTROGENS, CONJUGATED
     Route: 067
  13. PULMOZYME [Concomitant]
     Active Substance: DORNASE ALFA
  14. SODIUM CHLORIDE [Concomitant]
     Active Substance: SODIUM CHLORIDE
  15. FORTEO [Concomitant]
     Active Substance: TERIPARATIDE
     Indication: Osteoporosis
  16. SYSTANE (HYPROMELLOSE 2910 (4000 MPA.S)) [Concomitant]
     Active Substance: HYPROMELLOSE 2910 (4000 MPA.S)

REACTIONS (4)
  - Drug hypersensitivity [Recovering/Resolving]
  - Insomnia [Unknown]
  - Chronic obstructive pulmonary disease [Unknown]
  - Increased bronchial secretion [Unknown]

NARRATIVE: CASE EVENT DATE: 20230101
